FAERS Safety Report 24691880 (Version 7)
Quarter: 2025Q1

REPORT INFORMATION
  Report Type: Spontaneous
  Country: DE (occurrence: DE)
  Receive Date: 20241203
  Receipt Date: 20250307
  Transmission Date: 20250409
  Serious: Yes (Life-Threatening, Other)
  Sender: MYLAN
  Company Number: DE-ROCHE-10000084302

PATIENT
  Age: 16 Year
  Sex: Male
  Weight: 74.95 kg

DRUGS (99)
  1. METHOTREXATE [Suspect]
     Active Substance: METHOTREXATE
     Indication: Non-Hodgkin^s lymphoma
     Dates: start: 20240726
  2. METHOTREXATE [Suspect]
     Active Substance: METHOTREXATE
     Dates: start: 20240902
  3. METHOTREXATE [Suspect]
     Active Substance: METHOTREXATE
     Dates: start: 20240902
  4. IFOSFAMIDE [Suspect]
     Active Substance: IFOSFAMIDE
     Indication: Non-Hodgkin^s lymphoma
     Dates: start: 20240802
  5. IFOSFAMIDE [Suspect]
     Active Substance: IFOSFAMIDE
  6. IFOSFAMIDE [Suspect]
     Active Substance: IFOSFAMIDE
  7. LENOGRASTIM [Suspect]
     Active Substance: LENOGRASTIM
     Indication: Non-Hodgkin^s lymphoma
  8. LENOGRASTIM [Suspect]
     Active Substance: LENOGRASTIM
  9. LENOGRASTIM [Suspect]
     Active Substance: LENOGRASTIM
  10. LENOGRASTIM [Suspect]
     Active Substance: LENOGRASTIM
     Indication: Non-Hodgkin^s lymphoma
  11. TOCILIZUMAB [Suspect]
     Active Substance: TOCILIZUMAB
     Indication: Non-Hodgkin^s lymphoma
     Dates: start: 20240807
  12. TOCILIZUMAB [Suspect]
     Active Substance: TOCILIZUMAB
  13. CYTARABINE [Suspect]
     Active Substance: CYTARABINE
     Indication: Non-Hodgkin^s lymphoma
     Dates: start: 20240726
  14. CYTARABINE [Suspect]
     Active Substance: CYTARABINE
     Dates: start: 20240902
  15. CYTARABINE [Suspect]
     Active Substance: CYTARABINE
  16. HYDROCORTISONE [Suspect]
     Active Substance: HYDROCORTISONE
     Indication: Non-Hodgkin^s lymphoma
     Dates: start: 20240726
  17. HYDROCORTISONE [Suspect]
     Active Substance: HYDROCORTISONE
     Dates: start: 20240902
  18. HYDROCORTISONE [Suspect]
     Active Substance: HYDROCORTISONE
  19. OBINUTUZUMAB [Suspect]
     Active Substance: OBINUTUZUMAB
     Indication: Non-Hodgkin^s lymphoma
     Dates: start: 20240731
  20. OBINUTUZUMAB [Suspect]
     Active Substance: OBINUTUZUMAB
     Dates: start: 20240801
  21. OBINUTUZUMAB [Suspect]
     Active Substance: OBINUTUZUMAB
  22. OBINUTUZUMAB [Suspect]
     Active Substance: OBINUTUZUMAB
  23. COLUMVI [Suspect]
     Active Substance: GLOFITAMAB-GXBM
     Indication: Non-Hodgkin^s lymphoma
  24. COLUMVI [Suspect]
     Active Substance: GLOFITAMAB-GXBM
  25. COLUMVI [Suspect]
     Active Substance: GLOFITAMAB-GXBM
  26. MESNA [Suspect]
     Active Substance: MESNA
     Indication: Non-Hodgkin^s lymphoma
     Dates: start: 20240802
  27. MESNA [Suspect]
     Active Substance: MESNA
  28. MESNA [Suspect]
     Active Substance: MESNA
  29. MABTHERA [Suspect]
     Active Substance: RITUXIMAB
     Indication: Non-Hodgkin^s lymphoma
     Dates: start: 20240902
  30. MABTHERA [Suspect]
     Active Substance: RITUXIMAB
  31. MABTHERA [Suspect]
     Active Substance: RITUXIMAB
  32. CARBOPLATIN [Suspect]
     Active Substance: CARBOPLATIN
     Indication: Non-Hodgkin^s lymphoma
     Dates: start: 20240802
  33. CARBOPLATIN [Suspect]
     Active Substance: CARBOPLATIN
  34. ETOPOSIDE [Suspect]
     Active Substance: ETOPOSIDE
     Indication: Non-Hodgkin^s lymphoma
     Dates: start: 20240802
  35. ETOPOSIDE [Suspect]
     Active Substance: ETOPOSIDE
  36. ETOPOSIDE [Suspect]
     Active Substance: ETOPOSIDE
  37. HYDROMORPHONE [Suspect]
     Active Substance: HYDROMORPHONE
     Indication: Product used for unknown indication
     Dates: start: 20240808, end: 20240823
  38. HYDROMORPHONE [Suspect]
     Active Substance: HYDROMORPHONE
     Dates: start: 20240913, end: 20240918
  39. HYDROMORPHONE [Suspect]
     Active Substance: HYDROMORPHONE
     Dates: start: 20240918, end: 20240921
  40. METHYLPREDNISOLONE [Concomitant]
     Active Substance: METHYLPREDNISOLONE
     Indication: Product used for unknown indication
     Dosage: 120 MILLIGRAM, QD
     Dates: start: 20240828, end: 20240828
  41. ACETAMINOPHEN [Concomitant]
     Active Substance: ACETAMINOPHEN
     Indication: Headache
  42. ACETAMINOPHEN [Concomitant]
     Active Substance: ACETAMINOPHEN
  43. AMPHOTERICIN B [Concomitant]
     Active Substance: AMPHOTERICIN B
     Dosage: 100 MILLIGRAM, TID
     Dates: start: 20240922
  44. CLEMASTINE [Concomitant]
     Active Substance: CLEMASTINE
     Dates: start: 20240828, end: 20240902
  45. CAFFEINE [Concomitant]
     Active Substance: CAFFEINE
     Indication: Headache
     Dates: start: 20240727, end: 20240925
  46. Tranexamsaure eberth [Concomitant]
     Indication: Epistaxis
  47. HUMAN RED BLOOD CELL [Concomitant]
     Active Substance: HUMAN RED BLOOD CELL
     Indication: Anaemia
  48. HUMAN RED BLOOD CELL [Concomitant]
     Active Substance: HUMAN RED BLOOD CELL
     Indication: Platelet count decreased
  49. PLATELETS [Concomitant]
     Active Substance: HUMAN PLATELET, ALLOGENIC
     Indication: Platelet count decreased
  50. PLATELETS [Concomitant]
     Active Substance: HUMAN PLATELET, ALLOGENIC
     Indication: Anaemia
  51. MELATONIN [Concomitant]
     Active Substance: MELATONIN
     Dosage: 5 MILLIGRAM, QD
     Dates: start: 20240806, end: 20240913
  52. LEVETIRACETAM [Concomitant]
     Active Substance: LEVETIRACETAM
     Indication: Encephalopathy
  53. LEVETIRACETAM [Concomitant]
     Active Substance: LEVETIRACETAM
     Dates: start: 20240903, end: 20240922
  54. LEVETIRACETAM [Concomitant]
     Active Substance: LEVETIRACETAM
     Dates: start: 20240923, end: 20240923
  55. LEVETIRACETAM [Concomitant]
     Active Substance: LEVETIRACETAM
     Dates: start: 20240805, end: 20240901
  56. LEVETIRACETAM [Concomitant]
     Active Substance: LEVETIRACETAM
     Indication: Encephalopathy
     Dosage: 1500 MILLIGRAM, QD
     Dates: start: 20240924
  57. TRANEXAMIC ACID [Concomitant]
     Active Substance: TRANEXAMIC ACID
     Indication: Epistaxis
  58. ONDANSETRON [Concomitant]
     Active Substance: ONDANSETRON
     Indication: Prophylaxis of nausea and vomiting
     Dosage: 8 MILLIGRAM, TID
     Dates: start: 20240902, end: 20240902
  59. ONDANSETRON [Concomitant]
     Active Substance: ONDANSETRON
     Dosage: 8 MILLIGRAM, BID
     Dates: start: 20240903, end: 20240906
  60. ONDANSETRON [Concomitant]
     Active Substance: ONDANSETRON
     Dosage: 8 MILLIGRAM, QD
     Dates: start: 20240907, end: 20240907
  61. ONDANSETRON [Concomitant]
     Active Substance: ONDANSETRON
     Dates: start: 20240903, end: 20240906
  62. SULFAMETHOXAZOLE\TRIMETHOPRIM [Concomitant]
     Active Substance: SULFAMETHOXAZOLE\TRIMETHOPRIM
     Dosage: 320 MILLIGRAM, BIW
     Dates: start: 20240726, end: 20240913
  63. SULFAMETHOXAZOLE\TRIMETHOPRIM [Concomitant]
     Active Substance: SULFAMETHOXAZOLE\TRIMETHOPRIM
     Dosage: 320 MILLIGRAM, BIW
     Dates: start: 20240924
  64. PANTOPRAZOLE [Concomitant]
     Active Substance: PANTOPRAZOLE
     Dosage: 40 MILLIGRAM, QD
     Dates: start: 20240908, end: 20240915
  65. PANTOPRAZOLE [Concomitant]
     Active Substance: PANTOPRAZOLE
     Dosage: 40 MILLIGRAM, QD
     Dates: start: 20240917, end: 20240923
  66. PANTOPRAZOLE [Concomitant]
     Active Substance: PANTOPRAZOLE
     Dosage: 40 MILLIGRAM, QD
     Dates: start: 20240728, end: 20240907
  67. CAFFEINE [Concomitant]
     Active Substance: CAFFEINE
     Indication: Headache
     Dates: start: 20240727, end: 20240925
  68. DEXAMETHASONE [Concomitant]
     Active Substance: DEXAMETHASONE
     Indication: Neoplasm malignant
  69. DIMENHYDRINATE [Concomitant]
     Active Substance: DIMENHYDRINATE
     Indication: Prophylaxis of nausea and vomiting
     Dates: start: 20240906, end: 20240906
  70. DIMENHYDRINATE [Concomitant]
     Active Substance: DIMENHYDRINATE
     Indication: Prophylaxis of nausea and vomiting
     Dates: start: 20240906, end: 20240906
  71. MEROPENEM [Concomitant]
     Active Substance: MEROPENEM
     Indication: Febrile neutropenia
     Dosage: 2 GRAM, TID
     Dates: start: 20240815, end: 20240901
  72. MEROPENEM [Concomitant]
     Active Substance: MEROPENEM
     Dosage: 2 GRAM, QD
     Dates: start: 20240902, end: 20240902
  73. TEICOPLANIN [Concomitant]
     Active Substance: TEICOPLANIN
     Indication: Cytokine release syndrome
     Dates: start: 20240830, end: 20240830
  74. TEICOPLANIN [Concomitant]
     Active Substance: TEICOPLANIN
     Dosage: 400 MILLIGRAM, QD
     Dates: start: 20240831, end: 20240902
  75. NALOXONE HYDROCHLORIDE [Concomitant]
     Active Substance: NALOXONE HYDROCHLORIDE
     Dosage: 0.34 MILLIGRAM, QD
     Dates: start: 20240808, end: 20240820
  76. NALOXONE HYDROCHLORIDE [Concomitant]
     Active Substance: NALOXONE HYDROCHLORIDE
     Dosage: 0.17 MILLIGRAM, QD
     Dates: start: 20240820, end: 20240821
  77. FILGRASTIM [Concomitant]
     Active Substance: FILGRASTIM
     Indication: Neutropenia
     Dosage: 300 MICROGRAM, QD
     Dates: start: 20240806, end: 20240806
  78. FILGRASTIM [Concomitant]
     Active Substance: FILGRASTIM
     Dosage: 300 MICROGRAM, QD
     Dates: start: 20240808, end: 20240812
  79. FILGRASTIM [Concomitant]
     Active Substance: FILGRASTIM
     Indication: Neutropenia
     Dosage: 300 MICROGRAM, QD
     Dates: start: 20240813, end: 20240823
  80. FILGRASTIM [Concomitant]
     Active Substance: FILGRASTIM
     Dosage: 300 MICROGRAM, QD
     Dates: start: 20240825, end: 20240826
  81. FILGRASTIM [Concomitant]
     Active Substance: FILGRASTIM
     Dosage: 300 MICROGRAM, QD
     Dates: start: 20240912, end: 20240927
  82. FILGRASTIM [Concomitant]
     Active Substance: FILGRASTIM
     Dosage: 600 MICROGRAM, QD
     Dates: start: 20240928
  83. TRAMADOL [Concomitant]
     Active Substance: TRAMADOL
     Indication: Pain
     Dates: start: 20240829, end: 20240829
  84. TRAMADOL [Concomitant]
     Active Substance: TRAMADOL
     Dates: start: 20240830, end: 20241001
  85. TRAMADOL [Concomitant]
     Active Substance: TRAMADOL
     Dates: start: 20240930, end: 20241001
  86. TRAMADOL [Concomitant]
     Active Substance: TRAMADOL
     Indication: Pain
     Dates: start: 20240911, end: 20240913
  87. TRAMADOL [Concomitant]
     Active Substance: TRAMADOL
     Indication: Pain
     Dates: start: 20240929, end: 20240930
  88. TRANEXAMIC ACID [Concomitant]
     Active Substance: TRANEXAMIC ACID
     Indication: Epistaxis
     Dosage: 500 MILLIGRAM, TID
     Dates: start: 20240814, end: 20240820
  89. TRANEXAMIC ACID [Concomitant]
     Active Substance: TRANEXAMIC ACID
     Dates: start: 20240821, end: 20240821
  90. IBUPROFEN [Concomitant]
     Active Substance: IBUPROFEN
     Indication: Pain
     Dates: start: 20240905, end: 20240905
  91. METAMIZOLE [Concomitant]
     Active Substance: METAMIZOLE
     Indication: Encephalopathy
     Dates: start: 20240815, end: 20240916
  92. MICAFUNGIN [Concomitant]
     Active Substance: MICAFUNGIN SODIUM
     Indication: Pain
     Dosage: 200 MILLIGRAM, BIWEEKLY (400 MG, QW)
     Dates: start: 20240809, end: 20240830
  93. MICAFUNGIN [Concomitant]
     Active Substance: MICAFUNGIN SODIUM
     Dosage: 200 MILLIGRAM, FREQUENCY: 3 DAYS
     Dates: start: 20240910, end: 20240913
  94. MICAFUNGIN [Concomitant]
     Active Substance: MICAFUNGIN SODIUM
     Dosage: 200 MILLIGRAM, Q3D
     Dates: start: 20240910, end: 20240913
  95. MICAFUNGIN [Concomitant]
     Active Substance: MICAFUNGIN SODIUM
     Dosage: 100 MILLIGRAM, QD
     Dates: start: 20240918, end: 20240918
  96. MICAFUNGIN [Concomitant]
     Active Substance: MICAFUNGIN SODIUM
     Dosage: 100 MILLIGRAM, QD
     Dates: start: 20240916, end: 20240917
  97. MICAFUNGIN [Concomitant]
     Active Substance: MICAFUNGIN SODIUM
     Dosage: 200 MILLIGRAM, BIW
     Dates: start: 20240809, end: 20240830
  98. MICAFUNGIN [Concomitant]
     Active Substance: MICAFUNGIN SODIUM
     Dosage: 200 MILLIGRAM, BIW
     Dates: start: 20240910, end: 20240913
  99. TRAMADOL [Concomitant]
     Active Substance: TRAMADOL
     Indication: Pain

REACTIONS (3)
  - Sepsis [Recovered/Resolved]
  - Febrile neutropenia [Unknown]
  - Off label use [Unknown]

NARRATIVE: CASE EVENT DATE: 20240916
